FAERS Safety Report 6181841-X (Version None)
Quarter: 2009Q2

REPORT INFORMATION
  Report Type: 
  Country: None (occurrence: None)
  Receive Date: 20090506
  Receipt Date: 20090421
  Transmission Date: 20091009
  Serious: Yes (Other)
  Sender: FDA-Public Use
  Company Number: AU-GENENTECH-282014

PATIENT
  Sex: Female

DRUGS (2)
  1. LUCENTIS [Suspect]
     Indication: MACULAR DEGENERATION
     Dosage: 0.05 ML, UNK
     Dates: start: 20080801
  2. LUCENTIS [Suspect]
     Dosage: 0.05 ML, UNK
     Dates: start: 20090409

REACTIONS (1)
  - VISUAL IMPAIRMENT [None]
